FAERS Safety Report 5755035-3 (Version None)
Quarter: 2008Q2

REPORT INFORMATION
  Report Type: 
  Country: None (occurrence: None)
  Receive Date: 20080528
  Receipt Date: 20080528
  Transmission Date: 20081010
  Serious: No
  Sender: FDA-Public Use
  Company Number: None

PATIENT

DRUGS (1)
  1. SINGULAIR [Suspect]

REACTIONS (9)
  - ARTHRALGIA [None]
  - ASPHYXIA [None]
  - BURNING SENSATION [None]
  - COMPLETED SUICIDE [None]
  - EMOTIONAL DISORDER [None]
  - FEAR [None]
  - NIGHTMARE [None]
  - PAIN IN EXTREMITY [None]
  - SLEEP DISORDER [None]
